FAERS Safety Report 19513771 (Version 2)
Quarter: 2022Q1

REPORT INFORMATION
  Report Type: Other
  Country: US (occurrence: None)
  Receive Date: 20210709
  Receipt Date: 20220310
  Transmission Date: 20220423
  Serious: Yes (Other)
  Sender: FDA-Public Use
  Company Number: US-ROCHE-2818297

PATIENT
  Sex: Male
  Weight: 63.5 kg

DRUGS (10)
  1. ERIVEDGE [Suspect]
     Active Substance: VISMODEGIB
     Indication: Basal cell carcinoma
     Dosage: TAKE 1 CAPSULE BY MOUTH EVERY DAY
     Route: 048
  2. ERIVEDGE [Suspect]
     Active Substance: VISMODEGIB
     Indication: Basal cell carcinoma
  3. ACETIC ACID [Concomitant]
     Active Substance: ACETIC ACID
     Dosage: 0.25 % IRRIGATION SOLUTION
     Route: 061
  4. ACETAMINOPHEN\HYDROCODONE [Concomitant]
     Active Substance: ACETAMINOPHEN\HYDROCODONE
     Dosage: 5 MG - 325 MG
  5. MUPRICON [Concomitant]
     Dosage: 2 % TOPICAL OINTMENT
  6. PENICILLIN V POTASSIUM [Concomitant]
     Active Substance: PENICILLIN V POTASSIUM
     Dosage: 500 MG ORAL TABLET
  7. SILVER SULFADIAZINE [Concomitant]
     Active Substance: SILVER SULFADIAZINE
     Dosage: 1 % TOPICAL CREAM
  8. TRAMADOL [Concomitant]
     Active Substance: TRAMADOL
     Dosage: 50 MG ORAL TABLET
  9. FLORASTOR [SACCHAROMYCES BOULARDII] [Concomitant]
     Route: 048
  10. SILVADENE [Concomitant]
     Active Substance: SILVER SULFADIAZINE
     Route: 061

REACTIONS (3)
  - Localised infection [Unknown]
  - Cataract [Unknown]
  - Vision blurred [Unknown]
